FAERS Safety Report 16376383 (Version 34)
Quarter: 2023Q1

REPORT INFORMATION
  Report Type: Report from Study
  Country: IL (occurrence: IL)
  Receive Date: 20190531
  Receipt Date: 20230103
  Transmission Date: 20230418
  Serious: Yes (Hospitalization)
  Sender: FDA-Public Use
  Company Number: IL-SA-2018SA296562

PATIENT
  Age: 37 Year
  Sex: Male
  Weight: 61.5 kg

DRUGS (9)
  1. ALEMTUZUMAB [Suspect]
     Active Substance: ALEMTUZUMAB
     Indication: Relapsing multiple sclerosis
     Dosage: 12 MG, QD
     Route: 041
     Dates: start: 20180913, end: 20180917
  2. FEXOFENADINE [Concomitant]
     Active Substance: FEXOFENADINE HYDROCHLORIDE
     Dosage: 180 MG
     Route: 048
     Dates: start: 20180913, end: 20181010
  3. ZOVIRAX [Concomitant]
     Active Substance: ACYCLOVIR
     Indication: Prophylaxis
     Dosage: 200 MG
     Route: 048
     Dates: start: 20180913, end: 20181010
  4. PREDNISONE [Concomitant]
     Active Substance: PREDNISONE
     Indication: Prophylaxis
     Dosage: 60 MG
     Route: 048
     Dates: start: 20180917, end: 20181003
  5. SOLU-MEDROL [Concomitant]
     Active Substance: METHYLPREDNISOLONE SODIUM SUCCINATE
     Indication: Prophylaxis
     Dosage: 1000 G
     Route: 042
  6. CANNABIS SATIVA SUBSP. INDICA TOP [Concomitant]
     Active Substance: CANNABIS SATIVA SUBSP. INDICA TOP
     Indication: Pain
     Dosage: 20 G, QM
     Route: 065
     Dates: start: 201802, end: 201812
  7. CANNABIS SATIVA SUBSP. INDICA TOP [Concomitant]
     Active Substance: CANNABIS SATIVA SUBSP. INDICA TOP
     Indication: Muscle spasticity
     Dosage: 30 G, QM
     Dates: start: 201812
  8. CANNABIS SATIVA SUBSP. INDICA TOP [Concomitant]
     Active Substance: CANNABIS SATIVA SUBSP. INDICA TOP
     Indication: Multiple sclerosis
  9. ENOXAPARIN SODIUM [Concomitant]
     Active Substance: ENOXAPARIN SODIUM
     Indication: Thrombosis prophylaxis
     Dosage: UNK UNK, UNK
     Route: 065
     Dates: start: 201908

REACTIONS (10)
  - Disseminated varicella zoster virus infection [Not Recovered/Not Resolved]
  - Pancytopenia [Not Recovered/Not Resolved]
  - Cytomegalovirus infection [Recovered/Resolved]
  - Encephalitis viral [Recovered/Resolved]
  - Multiple sclerosis relapse [Recovered/Resolved]
  - Dermatitis allergic [Recovered/Resolved]
  - Muscle spasticity [Not Recovered/Not Resolved]
  - Migraine with aura [Recovered/Resolved]
  - Constipation [Recovering/Resolving]
  - Oral candidiasis [Recovered/Resolved]

NARRATIVE: CASE EVENT DATE: 20180918
